FAERS Safety Report 17729596 (Version 1)
Quarter: 2020Q2

REPORT INFORMATION
  Report Type: Spontaneous
  Country: FR (occurrence: FR)
  Receive Date: 20200430
  Receipt Date: 20200430
  Transmission Date: 20200714
  Serious: Yes (Congenital Anomaly)
  Sender: FDA-Public Use
  Company Number: FR-PFIZER INC-2020171079

PATIENT
  Sex: Male
  Weight: .91 kg

DRUGS (2)
  1. EFFEXOR LP [Suspect]
     Active Substance: VENLAFAXINE HYDROCHLORIDE
     Indication: BURNOUT SYNDROME
     Dosage: 1 DF, 1X/DAY
     Route: 064
     Dates: start: 20191015, end: 20191020
  2. XANAX [Suspect]
     Active Substance: ALPRAZOLAM
     Indication: BURNOUT SYNDROME
     Dosage: 1 DF, 1X/DAY
     Route: 064
     Dates: start: 20191015, end: 20191020

REACTIONS (3)
  - Maternal exposure during pregnancy [Not Recovered/Not Resolved]
  - Cleft lip and palate [Not Recovered/Not Resolved]
  - Congenital oral malformation [Not Recovered/Not Resolved]

NARRATIVE: CASE EVENT DATE: 20191015
